FAERS Safety Report 6762641-6 (Version None)
Quarter: 2010Q2

REPORT INFORMATION
  Report Type: 
  Country: None (occurrence: None)
  Receive Date: 20100609
  Receipt Date: 20100604
  Transmission Date: 20101027
  Serious: Yes (Other)
  Sender: FDA-Public Use
  Company Number: HQWYE438219AUG04

PATIENT
  Sex: Female

DRUGS (3)
  1. PREMPRO [Suspect]
     Indication: HORMONE REPLACEMENT THERAPY
  2. PROVERA [Suspect]
  3. PREMARIN [Suspect]

REACTIONS (5)
  - ANXIETY [None]
  - BREAST CANCER [None]
  - DIVERTICULITIS [None]
  - IRRITABLE BOWEL SYNDROME [None]
  - OSTEOPOROSIS [None]
